FAERS Safety Report 4631244-1 (Version None)
Quarter: 2005Q2

REPORT INFORMATION
  Report Type: 
  Country: None (occurrence: None)
  Receive Date: 20050408
  Receipt Date: 20050316
  Transmission Date: 20051028
  Serious: Yes (Hospitalization)
  Sender: FDA-Public Use
  Company Number: JP-MERCK-0503USA03165

PATIENT
  Age: 50 Year
  Sex: Female

DRUGS (3)
  1. DECADRON SRC [Suspect]
     Indication: CERVIX CARCINOMA
     Route: 048
     Dates: start: 20030801
  2. CARBOPLATIN [Concomitant]
     Indication: CERVIX CARCINOMA
     Route: 042
  3. ETOPOSIDE [Concomitant]
     Indication: CERVIX CARCINOMA
     Route: 065

REACTIONS (6)
  - CONDITION AGGRAVATED [None]
  - HEPATITIS B [None]
  - HYPERTHERMIA [None]
  - PROTHROMBIN TIME PROLONGED [None]
  - PROTHROMBIN TIME SHORTENED [None]
  - UTERINE DISORDER [None]
